FAERS Safety Report 23598707 (Version 1)
Quarter: 2024Q1

REPORT INFORMATION
  Report Type: Spontaneous
  Country: US (occurrence: US)
  Receive Date: 20240306
  Receipt Date: 20240306
  Transmission Date: 20240409
  Serious: No
  Sender: FDA-Public Use
  Company Number: US-KVK-TECH, INC-20230700116

PATIENT

DRUGS (1)
  1. CYCLOBENZAPRINE [Suspect]
     Active Substance: CYCLOBENZAPRINE
     Indication: Product used for unknown indication
     Dosage: 10 MILLIGRAM, UNKNOWN
     Route: 065
     Dates: start: 202307

REACTIONS (4)
  - Skin ulcer haemorrhage [Unknown]
  - Back pain [Unknown]
  - Adverse event [Unknown]
  - Hypersensitivity [Unknown]

NARRATIVE: CASE EVENT DATE: 20230701
